FAERS Safety Report 9196084 (Version 2)
Quarter: 2013Q2

REPORT INFORMATION
  Report Type: Spontaneous
  Country: FR (occurrence: FR)
  Receive Date: 20130328
  Receipt Date: 20130416
  Transmission Date: 20140414
  Serious: Yes (Other)
  Sender: FDA-Public Use
  Company Number: FR-RANBAXY-2013RR-66485

PATIENT
  Age: 17 Year
  Sex: Male

DRUGS (7)
  1. PARACETAMOL [Suspect]
     Indication: PRODUCT USED FOR UNKNOWN INDICATION
     Dosage: HIGH-DOSE
     Route: 065
  2. PREDNISONE [Suspect]
     Indication: STILL^S DISEASE ADULT ONSET
     Dosage: 1 MG/KG, UNK
     Route: 048
  3. PREDNISONE [Suspect]
     Dosage: 0.5 MG/KG, OVER 1 MONTH
     Route: 048
  4. PREDNISONE [Suspect]
     Dosage: 0.2 MG/KG, OVER THE NEXT MONTH
     Route: 048
  5. PREDNISONE [Suspect]
     Dosage: REDUCED BY 2.5 MG STEPS EVERY 2 MONTHS
     Route: 048
  6. ASPIRIN [Concomitant]
     Indication: MYOCARDITIS
     Dosage: UNK
     Route: 065
  7. ASPIRIN [Concomitant]
     Indication: PERICARDITIS

REACTIONS (2)
  - Epstein-Barr virus infection [Recovering/Resolving]
  - Hepatitis [Unknown]
